FAERS Safety Report 5599772-2 (Version None)
Quarter: 2008Q1

REPORT INFORMATION
  Report Type: 
  Country: None (occurrence: None)
  Receive Date: 20080118
  Receipt Date: 20080118
  Transmission Date: 20080703
  Serious: No
  Sender: FDA-Public Use
  Company Number: None

PATIENT
  Age: 66 Year
  Sex: Male
  Weight: 79.3795 kg

DRUGS (4)
  1. GADOLINIUM [Suspect]
  2. MAGNEVIST [Suspect]
  3. OMNISCAN [Suspect]
  4. PROHANCE [Suspect]

REACTIONS (14)
  - ARTHRITIS [None]
  - ASTHENIA [None]
  - DIARRHOEA [None]
  - DYSPNOEA [None]
  - EYE PRURITUS [None]
  - FLUID RETENTION [None]
  - HEPATIC ENZYME INCREASED [None]
  - MUSCULOSKELETAL STIFFNESS [None]
  - MYOSITIS [None]
  - PAIN [None]
  - PRURITUS [None]
  - RASH [None]
  - SWELLING [None]
  - URTICARIA [None]
